FAERS Safety Report 7865843-0 (Version None)
Quarter: 2011Q4

REPORT INFORMATION
  Report Type: 
  Country: None (occurrence: None)
  Receive Date: 20111028
  Receipt Date: 20110307
  Transmission Date: 20120403
  Serious: No
  Sender: FDA-Public Use
  Company Number: US-GLAXOSMITHKLINE-A0916986A

PATIENT
  Age: 74 Year
  Sex: Female

DRUGS (2)
  1. PRILOSEC [Concomitant]
  2. ADVAIR DISKUS 100/50 [Suspect]
     Indication: CHRONIC OBSTRUCTIVE PULMONARY DISEASE
     Dosage: 1PUFF TWICE PER DAY
     Route: 055
     Dates: end: 20110201

REACTIONS (2)
  - OROPHARYNGEAL PAIN [None]
  - ILL-DEFINED DISORDER [None]
